FAERS Safety Report 18945888 (Version 1)
Quarter: 2021Q1

REPORT INFORMATION
  Report Type: Spontaneous
  Country: DE (occurrence: DE)
  Receive Date: 20210226
  Receipt Date: 20210226
  Transmission Date: 20210420
  Serious: Yes (Hospitalization)
  Sender: FDA-Public Use
  Company Number: DE-TORRENT-00019645

PATIENT
  Age: 3 Year
  Sex: Male
  Weight: 14 kg

DRUGS (1)
  1. LAMOTRIGINE. [Suspect]
     Active Substance: LAMOTRIGINE
     Indication: PRODUCT USED FOR UNKNOWN INDICATION
     Dosage: DAILY DOSE: 200 MG MILLGRAM(S) EVERY TOTAL
     Route: 048
     Dates: start: 20190430

REACTIONS (8)
  - Mydriasis [Unknown]
  - Accidental exposure to product by child [Unknown]
  - Fatigue [Unknown]
  - Toxicity to various agents [Unknown]
  - Gait disturbance [Unknown]
  - Psychomotor hyperactivity [Unknown]
  - Product storage error [Unknown]
  - Hypertension [Unknown]

NARRATIVE: CASE EVENT DATE: 20190430
